FAERS Safety Report 19508215 (Version 1)
Quarter: 2021Q3

REPORT INFORMATION
  Report Type: Spontaneous
  Country: US (occurrence: US)
  Receive Date: 20210708
  Receipt Date: 20210708
  Transmission Date: 20211014
  Serious: No
  Sender: FDA-Public Use
  Company Number: US-SA-2021SA219887

PATIENT
  Age: 10 Year
  Sex: Male

DRUGS (1)
  1. CHILDREN^S ALLEGRA ALLERGY [Suspect]
     Active Substance: FEXOFENADINE HYDROCHLORIDE
     Indication: FOOD ALLERGY
     Dosage: 30 MG, QD
     Route: 048

REACTIONS (2)
  - Intentional product misuse to child [Unknown]
  - Product use complaint [Unknown]

NARRATIVE: CASE EVENT DATE: 20210630
